FAERS Safety Report 9692924 (Version 1)
Quarter: 2013Q4

REPORT INFORMATION
  Report Type: Spontaneous
  Country: US (occurrence: US)
  Receive Date: 20131118
  Receipt Date: 20131118
  Transmission Date: 20140711
  Serious: No
  Sender: FDA-Public Use
  Company Number: US-GLAXOSMITHKLINE-A1009480A

PATIENT
  Age: 84 Year
  Sex: Female

DRUGS (8)
  1. COREG CR [Suspect]
     Indication: HYPERTENSION
     Dosage: 20MG TWICE PER DAY
     Route: 048
     Dates: start: 201212, end: 201212
  2. CRESTOR [Concomitant]
  3. NORVASC [Concomitant]
  4. DIOVAN [Concomitant]
  5. GLIMEPIRIDE [Concomitant]
  6. METFORMIN [Concomitant]
  7. ASPIRIN [Concomitant]
  8. TRANQUILIZER [Concomitant]

REACTIONS (1)
  - Blood pressure increased [Recovered/Resolved]
